FAERS Safety Report 6358080-2 (Version None)
Quarter: 2009Q3

REPORT INFORMATION
  Report Type: 
  Country: None (occurrence: None)
  Receive Date: 20090916
  Receipt Date: 20090909
  Transmission Date: 20100115
  Serious: Yes (Other)
  Sender: FDA-Public Use
  Company Number: B0592642A

PATIENT
  Age: 75 Year
  Sex: Female

DRUGS (2)
  1. REQUIP XL [Suspect]
     Indication: PARKINSON'S DISEASE
     Route: 048
  2. REQUIP [Concomitant]

REACTIONS (2)
  - ILL-DEFINED DISORDER [None]
  - PARKINSON'S DISEASE [None]
